FAERS Safety Report 6466771-8 (Version None)
Quarter: 2009Q4

REPORT INFORMATION
  Report Type: 
  Country: None (occurrence: None)
  Receive Date: 20091202
  Receipt Date: 20091119
  Transmission Date: 20100525
  Serious: Yes (Other)
  Sender: FDA-Public Use
  Company Number: US-ALEXION-A200901001

PATIENT
  Sex: Female

DRUGS (2)
  1. SOLIRIS 300MG [Suspect]
     Indication: PAROXYSMAL NOCTURNAL HAEMOGLOBINURIA
     Dosage: 600 MG, WEEKLY
     Route: 042
     Dates: start: 20090803
  2. SOLIRIS 300MG [Suspect]
     Dosage: 900 MG, EVERY 2 WEEKS
     Route: 042
     Dates: start: 20090831, end: 20091028

REACTIONS (3)
  - CHEST PAIN [None]
  - DYSPHAGIA [None]
  - LOSS OF CONSCIOUSNESS [None]
